FAERS Safety Report 6822066-1 (Version None)
Quarter: 2010Q3

REPORT INFORMATION
  Report Type: 
  Country: None (occurrence: None)
  Receive Date: 20100708
  Receipt Date: 20100617
  Transmission Date: 20110219
  Serious: Yes (Other)
  Sender: FDA-Public Use
  Company Number: US-ASTRAZENECA-2009UW10961

PATIENT
  Age: 52 Year
  Sex: Male
  Weight: 94.3 kg

DRUGS (8)
  1. SEROQUEL [Suspect]
     Indication: BIPOLAR DISORDER
     Route: 048
     Dates: start: 20010101
  2. SEROQUEL [Suspect]
     Indication: SLEEP DISORDER
     Route: 048
     Dates: start: 20010101
  3. SEROQUEL [Suspect]
     Dosage: 25 TO 50 MG HS
     Route: 048
     Dates: start: 20030915
  4. SEROQUEL [Suspect]
     Dosage: 25 TO 50 MG HS
     Route: 048
     Dates: start: 20030915
  5. HYDROMORPHONE [Concomitant]
     Dates: start: 20030101
  6. SOMA [Concomitant]
     Dates: start: 20010101
  7. PROTONIX [Concomitant]
     Dates: start: 20030101
  8. ALBUTEROL [Concomitant]
     Dates: start: 20010101

REACTIONS (2)
  - DIABETES MELLITUS [None]
  - NEUROPATHY PERIPHERAL [None]
